FAERS Safety Report 25274413 (Version 2)
Quarter: 2025Q2

REPORT INFORMATION
  Report Type: Spontaneous
  Country: CN (occurrence: CN)
  Receive Date: 20250506
  Receipt Date: 20250509
  Transmission Date: 20250717
  Serious: Yes (Other)
  Sender: ORGANON
  Company Number: CN-ORGANON-O2505CHN000013

PATIENT
  Age: 36 Year
  Sex: Female
  Weight: 60 kg

DRUGS (7)
  1. FOLLITROPIN BETA [Suspect]
     Active Substance: FOLLITROPIN BETA
     Indication: Infertility female
     Dosage: 225IU, QD, SUBCUTANEOUS INJECTION
     Route: 058
     Dates: start: 20250410, end: 20250418
  2. GANIRELIX ACETATE [Suspect]
     Active Substance: GANIRELIX ACETATE
     Indication: Infertility female
     Dosage: 0.25MG, QD, SUBCUTANEOUS INJECTION
     Route: 058
     Dates: start: 20250418, end: 20250421
  3. MENOTROPINS [Suspect]
     Active Substance: MENOTROPINS
     Indication: Infertility female
     Dosage: 75IU,QD, INTRAMUSCULAR INJECTION
     Route: 030
     Dates: start: 20250410, end: 20250418
  4. DYDROGESTERONE\ESTRADIOL [Suspect]
     Active Substance: DYDROGESTERONE\ESTRADIOL
     Indication: Infertility female
     Dosage: 1 TABLET, BID, ORALLY
     Route: 048
     Dates: start: 20250328, end: 20250411
  5. KUN TAI [Concomitant]
     Indication: Infertility female
     Dosage: 2G, TID, ORALLY
     Route: 048
     Dates: start: 20250323, end: 20250408
  6. VITAMIN D2 [Concomitant]
     Active Substance: ERGOCALCIFEROL
     Indication: Infertility female
     Dosage: 1 CAPSULE, QD, ORALLY
     Route: 048
     Dates: start: 20250323, end: 20250408
  7. NENG QI LANG [Concomitant]
     Indication: Infertility female
     Dosage: 10 MILLIGRAM, TID
     Route: 048
     Dates: start: 20250323, end: 20250408

REACTIONS (1)
  - Hepatic function abnormal [Unknown]

NARRATIVE: CASE EVENT DATE: 20250421
